FAERS Safety Report 4962854-X (Version None)
Quarter: 2006Q2

REPORT INFORMATION
  Report Type: 
  Country: None (occurrence: None)
  Receive Date: 20060403
  Receipt Date: 20060403
  Transmission Date: 20061013
  Serious: Yes (Life-Threatening, Hospitalization, Disabling)
  Sender: FDA-Public Use
  Company Number: None

PATIENT
  Age: 29 Year
  Sex: Male
  Weight: 88.905 kg

DRUGS (5)
  1. DEPO-MEDROL [Suspect]
     Indication: BACK PAIN
     Dosage: 80 MG    ONCE PER MONTH   EPIDURAL
     Route: 008
     Dates: start: 20050305, end: 20060228
  2. DEPO-MEDROL [Suspect]
     Indication: SCIATICA
     Dosage: 80 MG    ONCE PER MONTH   EPIDURAL
     Route: 008
     Dates: start: 20050305, end: 20060228
  3. MARCAINE [Concomitant]
  4. KENALOG [Concomitant]
  5. FENTANYL [Concomitant]

REACTIONS (2)
  - MENINGITIS BACTERIAL [None]
  - MIGRAINE [None]
